FAERS Safety Report 23113140 (Version 1)
Quarter: 2023Q4

REPORT INFORMATION
  Report Type: Spontaneous
  Country: GR (occurrence: GR)
  Receive Date: 20231027
  Receipt Date: 20231027
  Transmission Date: 20240110
  Serious: Yes (Other)
  Sender: FDA-Public Use
  Company Number: GR-Techdow-2023Techdow000183

PATIENT
  Age: 68 Year
  Sex: Female

DRUGS (4)
  1. ENOXAPARIN SODIUM [Suspect]
     Active Substance: ENOXAPARIN SODIUM
     Indication: Prophylaxis
     Dosage: 4.000IU,QD,PERIOPERATIVE TOTAL RIGHT HIP ARTHROPLASTY
  2. ENOXAPARIN SODIUM [Suspect]
     Active Substance: ENOXAPARIN SODIUM
     Indication: Prophylaxis
     Dosage: 4.000IU,QD
  3. CANDESARTAN [Concomitant]
     Active Substance: CANDESARTAN
     Dosage: 16MG,QD
  4. SERTRALINE [Concomitant]
     Active Substance: SERTRALINE HYDROCHLORIDE
     Dosage: 100MG,QD

REACTIONS (1)
  - Fat embolism syndrome [Recovering/Resolving]
